FAERS Safety Report 9106461 (Version 4)
Quarter: 2013Q1

REPORT INFORMATION
  Report Type: Spontaneous
  Country: JP (occurrence: JP)
  Receive Date: 20130221
  Receipt Date: 20130320
  Transmission Date: 20140127
  Serious: Yes (Other)
  Sender: FDA-Public Use
  Company Number: JP-PFIZER INC-2013065458

PATIENT
  Age: 57 Year
  Sex: Male
  Weight: 60 kg

DRUGS (5)
  1. CARDENALIN [Suspect]
     Indication: HYPERTENSION
     Dosage: 0.5 MG, 1X/DAY
     Route: 048
     Dates: start: 20120428, end: 20130308
  2. EXFORGE [Suspect]
     Indication: HYPERTENSION
     Dosage: 1 DF, 1X/DAY
     Route: 048
     Dates: start: 20110611
  3. ARTIST [Suspect]
     Indication: HYPERTENSION
     Dosage: 20 MG, 1X/DAY
     Route: 048
     Dates: start: 20120204
  4. NATRIX [Suspect]
     Indication: HYPERTENSION
     Dosage: 0.5 MG, 1X/DAY
     Route: 048
     Dates: start: 20120204, end: 20130308
  5. FEBURIC [Suspect]
     Indication: HYPERURICAEMIA
     Dosage: 20 MG, 1X/DAY
     Route: 048
     Dates: start: 20120908, end: 20130308

REACTIONS (1)
  - Retinitis [Not Recovered/Not Resolved]
